FAERS Safety Report 8593622-8 (Version None)
Quarter: 2012Q3

REPORT INFORMATION
  Report Type: 
  Country: None (occurrence: None)
  Receive Date: 20120814
  Receipt Date: 20120730
  Transmission Date: 20120928
  Serious: Yes (Life-Threatening, Hospitalization)
  Sender: FDA-Public Use
  Company Number: BE-ROCHE-1095055

PATIENT
  Sex: Male

DRUGS (8)
  1. METFORMIN HCL [Concomitant]
     Indication: TYPE 2 DIABETES MELLITUS
     Route: 048
     Dates: end: 20120727
  2. ALLOPURINOL [Concomitant]
     Dosage: DOSE DECREASED DUE TO RENAL INSUFFICIENCY
  3. ALLOPURINOL [Concomitant]
     Indication: GOUT
     Route: 048
     Dates: end: 20120727
  4. METFORMIN HCL [Concomitant]
     Dosage: DOSE DECREASED DUE TO RENAL INSUFFICIENCY
  5. BISOPROLOL [Concomitant]
  6. ZELBORAF [Suspect]
     Indication: METASTATIC MALIGNANT MELANOMA
     Route: 048
     Dates: start: 20120712
  7. CO-BISOPROLOL [Concomitant]
     Indication: HYPERTENSION
     Dosage: 10/25 MG
     Route: 048
     Dates: end: 20120727
  8. SIMVASTATIN [Concomitant]
     Indication: HYPERCHOLESTEROLAEMIA
     Route: 048

REACTIONS (9)
  - DYSPNOEA [None]
  - HEPATIC FUNCTION ABNORMAL [None]
  - RENAL FAILURE [None]
  - ATRIAL FIBRILLATION [None]
  - CARDIOMEGALY [None]
  - METABOLIC ACIDOSIS [None]
  - FATIGUE [None]
  - HYPERGLYCAEMIA [None]
  - HYPONATRAEMIA [None]
